FAERS Safety Report 21403520 (Version 1)
Quarter: 2022Q4

REPORT INFORMATION
  Report Type: Spontaneous
  Country: US (occurrence: US)
  Receive Date: 20221003
  Receipt Date: 20221003
  Transmission Date: 20230112
  Serious: No
  Sender: FDA-Public Use
  Company Number: US-BAXTER-2022BAX020861

PATIENT
  Age: 70 Year
  Sex: Female

DRUGS (1)
  1. EXTRANEAL [Suspect]
     Active Substance: CALCIUM CHLORIDE\ICODEXTRIN\MAGNESIUM CHLORIDE\SODIUM CHLORIDE\SODIUM LACTATE
     Indication: Peritoneal dialysis
     Route: 033

REACTIONS (5)
  - Illness [Unknown]
  - Drug hypersensitivity [Unknown]
  - Catheter site erythema [Unknown]
  - Rash pruritic [Unknown]
  - Nausea [Unknown]

NARRATIVE: CASE EVENT DATE: 20220924
